FAERS Safety Report 25986738 (Version 2)
Quarter: 2025Q4

REPORT INFORMATION
  Report Type: Spontaneous
  Country: CN (occurrence: CN)
  Receive Date: 20251031
  Receipt Date: 20251110
  Transmission Date: 20260118
  Serious: Yes (Other)
  Sender: RIGEL PHARMACEUTICALS
  Company Number: CN-CSTONE PHARMACEUTICALS (SUZHOU) CO., LTD.-2025CN00803

PATIENT
  Age: 55 Year
  Sex: Female

DRUGS (5)
  1. GAVRETO [Suspect]
     Active Substance: PRALSETINIB
     Indication: Non-small cell lung cancer metastatic
     Dosage: 400 MILLIGRAM, QD
     Route: 048
     Dates: start: 20220729
  2. GAVRETO [Suspect]
     Active Substance: PRALSETINIB
     Dosage: 400 MILLIGRAM, QD
     Route: 048
  3. GAVRETO [Suspect]
     Active Substance: PRALSETINIB
     Dosage: 300 MILLIGRAM, QD
     Route: 048
  4. GAVRETO [Suspect]
     Active Substance: PRALSETINIB
     Dosage: 400 MILLIGRAM, QD
     Route: 048
  5. CALCIUM [Concomitant]
     Active Substance: CALCIUM
     Indication: Metastases to bone
     Dosage: SOMETIME TAKING, AND SOMETIMES DISCONTINUES THEM
     Route: 048

REACTIONS (11)
  - Malignant neoplasm progression [Recovered/Resolved]
  - Immunodeficiency [Unknown]
  - Red blood cell count decreased [Not Recovered/Not Resolved]
  - Ocular discomfort [Unknown]
  - Malaise [Unknown]
  - Discomfort [Unknown]
  - Therapeutic product effect decreased [Unknown]
  - White blood cell count decreased [Recovering/Resolving]
  - Generalised oedema [Unknown]
  - Anaemia [Recovering/Resolving]
  - Asthenia [Unknown]
